FAERS Safety Report 9195684 (Version 1)
Quarter: 2013Q1

REPORT INFORMATION
  Report Type: Spontaneous
  Country: US (occurrence: None)
  Receive Date: 20130325
  Receipt Date: 20130325
  Transmission Date: 20140127
  Serious: No
  Sender: FDA-Public Use
  Company Number: None

PATIENT
  Age: 41 Year
  Sex: Female

DRUGS (1)
  1. ZELBORAF [Suspect]
     Indication: MALIGNANT MELANOMA
     Route: 048
     Dates: start: 20121205, end: 20130321

REACTIONS (5)
  - Hypoaesthesia [None]
  - Burning sensation [None]
  - Paraesthesia [None]
  - Pain [None]
  - Gait disturbance [None]
